FAERS Safety Report 20092233 (Version 1)
Quarter: 2021Q4

REPORT INFORMATION
  Report Type: Spontaneous
  Country: US (occurrence: None)
  Receive Date: 20211119
  Receipt Date: 20211119
  Transmission Date: 20220303
  Serious: No
  Sender: FDA-Public Use
  Company Number: None

PATIENT
  Age: 70 Year
  Sex: Female
  Weight: 76.5 kg

DRUGS (7)
  1. LIDOCAINE HYDROCHLORIDE [Suspect]
     Active Substance: LIDOCAINE HYDROCHLORIDE
     Indication: Skin disorder
     Dosage: OTHER QUANTITY : 1 OUNCE(S);?OTHER FREQUENCY : AS NEEDED;?
     Route: 058
     Dates: start: 20190919
  2. METOPEROL [Concomitant]
  3. UNSPECIFIED INGREDIENT [Concomitant]
     Active Substance: UNSPECIFIED INGREDIENT
  4. VITAMIN C [Concomitant]
     Active Substance: ASCORBIC ACID
  5. VITAMIN D [Concomitant]
     Active Substance: VITAMIN D NOS
  6. VITAMIN B [Concomitant]
     Active Substance: VITAMIN B
  7. TYLENOL [Concomitant]

REACTIONS (2)
  - Skin burning sensation [None]
  - Recalled product administered [None]

NARRATIVE: CASE EVENT DATE: 20211014
